FAERS Safety Report 20705356 (Version 1)
Quarter: 2022Q2

REPORT INFORMATION
  Report Type: Spontaneous
  Country: US (occurrence: US)
  Receive Date: 20220413
  Receipt Date: 20220413
  Transmission Date: 20220721
  Serious: No
  Sender: FDA-Public Use
  Company Number: US-BAXTER-2022BAX007733

PATIENT
  Age: 83 Year
  Sex: Male

DRUGS (2)
  1. FOSAPREPITANT DIMEGLUMINE [Suspect]
     Active Substance: FOSAPREPITANT DIMEGLUMINE
     Indication: Chemotherapy
     Dosage: INFUSION RATE OF 330 ML PER HOUR
     Route: 042
     Dates: start: 20220321, end: 20220321
  2. FOSAPREPITANT DIMEGLUMINE [Suspect]
     Active Substance: FOSAPREPITANT DIMEGLUMINE
     Dosage: INFUSION RATE OF 165 ML PER HOUR?DOSE REINTRODUCED
     Route: 042
     Dates: start: 20220321

REACTIONS (2)
  - Ill-defined disorder [Recovered/Resolved]
  - Flushing [Recovered/Resolved]

NARRATIVE: CASE EVENT DATE: 20220321
